FAERS Safety Report 8454931-6 (Version None)
Quarter: 2012Q2

REPORT INFORMATION
  Report Type: 
  Country: None (occurrence: None)
  Receive Date: 20120621
  Receipt Date: 20120614
  Transmission Date: 20120825
  Serious: No
  Sender: FDA-Public Use
  Company Number: US-PFIZER INC-2012143647

PATIENT
  Sex: Female

DRUGS (1)
  1. PREMARIN [Suspect]
     Dosage: 0.625 MG, UNK

REACTIONS (6)
  - CRYING [None]
  - NAUSEA [None]
  - DIZZINESS [None]
  - HOT FLUSH [None]
  - FEELING COLD [None]
  - HEADACHE [None]
